FAERS Safety Report 14061831 (Version 1)
Quarter: 2017Q4

REPORT INFORMATION
  Report Type: Spontaneous
  Country: FR (occurrence: FR)
  Receive Date: 20171009
  Receipt Date: 20171009
  Transmission Date: 20180321
  Serious: Yes (Hospitalization)
  Sender: FDA-Public Use
  Company Number: FR-MERCK KGAA-2029305

PATIENT
  Age: 86 Year
  Sex: Female

DRUGS (1)
  1. NOVOTHYROX [Suspect]
     Active Substance: LEVOTHYROXINE SODIUM
     Indication: PRODUCT USED FOR UNKNOWN INDICATION
     Dates: start: 201706

REACTIONS (4)
  - Muscle tightness [None]
  - Hypertension [None]
  - Blood thyroid stimulating hormone abnormal [Recovered/Resolved]
  - Fatigue [None]

NARRATIVE: CASE EVENT DATE: 20170829
